FAERS Safety Report 8851972 (Version 2)
Quarter: 2012Q4

REPORT INFORMATION
  Report Type: 
  Country: US (occurrence: US)
  Receive Date: 20121022
  Receipt Date: 20121226
  Transmission Date: 20130627
  Serious: Yes (Other)
  Sender: FDA-Public Use
  Company Number: US-BAYER-2012-107857

PATIENT
  Age: 34 Year
  Sex: Female
  Weight: 73.47 kg

DRUGS (2)
  1. MIRENA [Suspect]
     Indication: CONTRACEPTION
     Dosage: 20 mcg/24hr, CONT
     Route: 015
     Dates: start: 20110909, end: 201206
  2. HURRICAINE [BENZOCAINE] [Concomitant]
     Indication: INTRA-UTERINE CONTRACEPTIVE DEVICE INSERTION
     Route: 061

REACTIONS (3)
  - Genital haemorrhage [Recovered/Resolved]
  - Device dislocation [Recovered/Resolved]
  - Sensation of pressure [Recovered/Resolved]
